FAERS Safety Report 11520676 (Version 1)
Quarter: 2015Q3

REPORT INFORMATION
  Report Type: Spontaneous
  Country: US (occurrence: US)
  Receive Date: 20150918
  Receipt Date: 20150918
  Transmission Date: 20151125
  Serious: No
  Sender: FDA-Public Use
  Company Number: US-PFIZER INC-2015308283

PATIENT
  Age: 19 Year
  Sex: Female

DRUGS (2)
  1. POTASSIUM [Suspect]
     Active Substance: POTASSIUM
  2. BENZYLPENICILLIN POTASSIUM [Suspect]
     Active Substance: PENICILLIN G POTASSIUM

REACTIONS (1)
  - Drug hypersensitivity [Not Recovered/Not Resolved]
